FAERS Safety Report 8020919-2 (Version None)
Quarter: 2011Q4

REPORT INFORMATION
  Report Type: 
  Country: None (occurrence: None)
  Receive Date: 20111228
  Receipt Date: 20111214
  Transmission Date: 20120403
  Serious: Yes (Life-Threatening, Hospitalization, Other)
  Sender: FDA-Public Use
  Company Number: 2011P1013740

PATIENT
  Age: 63 Year
  Sex: Female
  Weight: 29.9 kg

DRUGS (6)
  1. ONEALFA [Concomitant]
  2. EPOETIN BETA INJECTION [Concomitant]
  3. LASIX [Suspect]
     Indication: OEDEMA
     Dosage: 20 MG; QD; PO
     Route: 048
     Dates: start: 20110401, end: 20111121
  4. FAMOTIDINE [Suspect]
     Indication: ABDOMINAL DISCOMFORT
     Dosage: 10 MG; QD; PO
     Route: 048
     Dates: start: 20111101, end: 20111121
  5. ALLOPURINOL [Concomitant]
  6. JUZENTAIHOTO (HERBAL EXTRACT) [Concomitant]

REACTIONS (5)
  - HYPONATRAEMIA [None]
  - CARDIAC FAILURE [None]
  - BLOOD UREA INCREASED [None]
  - INAPPROPRIATE ANTIDIURETIC HORMONE SECRETION [None]
  - BLOOD CREATININE INCREASED [None]
